FAERS Safety Report 9532308 (Version 1)
Quarter: 2013Q3

REPORT INFORMATION
  Report Type: Spontaneous
  Country: FR (occurrence: FR)
  Receive Date: 20130918
  Receipt Date: 20130918
  Transmission Date: 20140515
  Serious: Yes (Life-Threatening, Hospitalization)
  Sender: FDA-Public Use
  Company Number: PHHY2013FR103146

PATIENT
  Age: 73 Year
  Sex: Female

DRUGS (17)
  1. ACLASTA [Suspect]
     Indication: OSTEOPOROSIS
     Dosage: 5 MG, PER YEAR
     Route: 042
     Dates: start: 20121121
  2. COAPROVEL [Concomitant]
     Dosage: 312.5 MG, QD (300 MG IRBESARTAN AND 12.5 MG HYDROCHLOROTHIAZIDE)
     Route: 048
     Dates: end: 20121214
  3. FUROSEMIDE [Concomitant]
     Dosage: 20 MG, QD
     Route: 048
     Dates: end: 20121214
  4. DEPAKINE [Concomitant]
     Dosage: 500 UKN, UNK
  5. LEVOTHYROX [Concomitant]
     Dosage: 100 UKN, UNK
  6. CACIT D3 [Concomitant]
  7. LAMALINE [Concomitant]
  8. SEROPLEX [Concomitant]
  9. SERESTA [Concomitant]
  10. IMOVANE [Concomitant]
  11. METFORMIN [Concomitant]
  12. RISPERDAL [Concomitant]
  13. PRAVASTATIN [Concomitant]
  14. EUCREAS [Concomitant]
  15. AKINETON                                /AUS/ [Concomitant]
  16. IPERTEN [Concomitant]
  17. TRANSIPEG                          /01618701/ [Concomitant]

REACTIONS (3)
  - Renal tubular necrosis [Not Recovered/Not Resolved]
  - Hyperkalaemia [Recovered/Resolved]
  - Renal failure acute [Not Recovered/Not Resolved]
